FAERS Safety Report 12700822 (Version 1)
Quarter: 2016Q3

REPORT INFORMATION
  Report Type: Spontaneous
  Country: US (occurrence: None)
  Receive Date: 20160830
  Receipt Date: 20160830
  Transmission Date: 20161109
  Serious: Yes (Death, Hospitalization)
  Sender: FDA-Public Use
  Company Number: None

PATIENT
  Age: 64 Year
  Sex: Male
  Weight: 62.1 kg

DRUGS (1)
  1. TEMOZOLOMIDE. [Suspect]
     Active Substance: TEMOZOLOMIDE
     Dates: end: 20160705

REACTIONS (5)
  - Fatigue [None]
  - Aphasia [None]
  - Disease progression [None]
  - Hemiparesis [None]
  - Nuclear magnetic resonance imaging brain abnormal [None]

NARRATIVE: CASE EVENT DATE: 20160824
